FAERS Safety Report 6068309-6 (Version None)
Quarter: 2009Q1

REPORT INFORMATION
  Report Type: 
  Country: None (occurrence: None)
  Receive Date: 20090206
  Receipt Date: 20090203
  Transmission Date: 20090719
  Serious: Yes (Death)
  Sender: FDA-Public Use
  Company Number: PHBS2009JP00675

PATIENT
  Age: 62 Year
  Sex: Male

DRUGS (15)
  1. CYCLOSPORINE [Suspect]
     Indication: CORD BLOOD TRANSPLANT THERAPY
     Dosage: 3 MG/KG
  2. FLUDARABINE PHOSPHATE [Suspect]
     Dosage: 125 MG/M2
  3. L-PAM [Suspect]
     Dosage: 80 MG/M2
  4. IRRADIATION [Concomitant]
  5. POLYMYCIN B SULFATE [Concomitant]
  6. HEPARIN [Concomitant]
  7. GLYCYRRHIZINATE POTASSIUM [Concomitant]
  8. MENATETRENONE [Concomitant]
  9. CEFPIROME [Concomitant]
  10. IMIPENEM [Concomitant]
  11. IMMUNOGLOBULINS [Concomitant]
     Route: 042
  12. ALBUMIN (HUMAN) [Concomitant]
     Route: 042
  13. HYDROXYZINE [Concomitant]
     Route: 042
  14. FUROSEMIDE [Concomitant]
     Route: 042
  15. METOCLOPRAMIDE [Concomitant]
     Route: 042

REACTIONS (4)
  - CONVULSION [None]
  - DEPRESSED LEVEL OF CONSCIOUSNESS [None]
  - MULTI-ORGAN FAILURE [None]
  - TOXIC ENCEPHALOPATHY [None]
